FAERS Safety Report 4435222-7 (Version None)
Quarter: 2004Q3

REPORT INFORMATION
  Report Type: 
  Country: None (occurrence: None)
  Receive Date: 20040827
  Receipt Date: 20040816
  Transmission Date: 20050211
  Serious: Yes (Other)
  Sender: FDA-Public Use
  Company Number: US-GLAXOSMITHKLINE-A0523362A

PATIENT
  Sex: Male

DRUGS (2)
  1. ESKALITH [Suspect]
     Indication: DRUG USE FOR UNKNOWN INDICATION
  2. SEROQUEL [Concomitant]

REACTIONS (8)
  - BACK INJURY [None]
  - BONE DISORDER [None]
  - DIARRHOEA [None]
  - DISTURBANCE IN SEXUAL AROUSAL [None]
  - DRY MOUTH [None]
  - HYPOTRICHOSIS [None]
  - PREMATURE AGEING [None]
  - SOMNOLENCE [None]
